FAERS Safety Report 17374970 (Version 6)
Quarter: 2022Q1

REPORT INFORMATION
  Report Type: Report from Study
  Country: GB (occurrence: GB)
  Receive Date: 20200205
  Receipt Date: 20220209
  Transmission Date: 20220423
  Serious: Yes (Hospitalization, Other)
  Sender: FDA-Public Use
  Company Number: GB-ROCHE-2513421

PATIENT
  Age: 78 Year
  Sex: Female

DRUGS (18)
  1. DOCETAXEL [Suspect]
     Active Substance: DOCETAXEL
     Indication: Breast cancer metastatic
     Dosage: 94 MG, EVERY 3 WEEKS
     Route: 042
     Dates: start: 20160122, end: 20160318
  2. DOCETAXEL [Suspect]
     Active Substance: DOCETAXEL
     Dosage: 74 MG, EVERY 3 WEEKS (DATE OF LAST OF DOSE: 20MAY2016)
     Route: 042
     Dates: start: 20160318, end: 20160520
  3. TRASTUZUMAB [Suspect]
     Active Substance: TRASTUZUMAB
     Indication: Breast cancer metastatic
     Dosage: 630 MG, EVERY 3 WEEKS
     Route: 042
     Dates: start: 20160121, end: 20160121
  4. TRASTUZUMAB [Suspect]
     Active Substance: TRASTUZUMAB
     Dosage: 472.5 MG, EVERY 3 WEEKS
     Route: 042
     Dates: start: 20160212
  5. PERTUZUMAB [Suspect]
     Active Substance: PERTUZUMAB
     Indication: Breast cancer metastatic
     Dosage: 840 MG, UNK
     Route: 042
     Dates: start: 20160121, end: 20160121
  6. PERTUZUMAB [Suspect]
     Active Substance: PERTUZUMAB
     Dosage: 420 MG, EVERY 3 WEEKS
     Route: 042
     Dates: start: 20160212
  7. FILGRASTIM [Concomitant]
     Active Substance: FILGRASTIM
     Dosage: 480 UG, 1X/DAY
     Route: 042
     Dates: start: 20160123, end: 20160127
  8. DEXAMETHASONE [Concomitant]
     Active Substance: DEXAMETHASONE
     Dosage: 8 MG, 2X/DAY
     Route: 048
     Dates: start: 20160211, end: 20160214
  9. METOCLOPRAMIDE [Concomitant]
     Active Substance: METOCLOPRAMIDE
     Dosage: 10 MG, UNK
     Route: 042
     Dates: start: 20160212, end: 20160212
  10. METOCLOPRAMIDE [Concomitant]
     Active Substance: METOCLOPRAMIDE
     Dosage: 10 MG, UNK
     Route: 042
     Dates: start: 20160122, end: 20160122
  11. LANSOPRAZOLE [Concomitant]
     Active Substance: LANSOPRAZOLE
     Indication: Dyspepsia
     Dosage: 30 MG, AS NEEDED
     Route: 048
     Dates: start: 20160210
  12. DEXAMETHASONE [Concomitant]
     Active Substance: DEXAMETHASONE
     Dosage: 8 MG, 2X/DAY
     Route: 042
     Dates: start: 20160121, end: 20160123
  13. AMLODIPINE [Concomitant]
     Active Substance: AMLODIPINE BESYLATE
     Indication: Hypertension
     Dosage: 5 MG, 1X/DAY
     Route: 048
     Dates: start: 20200219
  14. BUTRANS [Concomitant]
     Active Substance: BUPRENORPHINE
     Indication: Arthralgia
     Dosage: 5 UG, 1X/DAY
  15. IBUPROFEN [Concomitant]
     Active Substance: IBUPROFEN
     Indication: Arthralgia
     Dosage: 1 DROP, AS NEEDED
     Route: 061
  16. ACETAMINOPHEN [Concomitant]
     Active Substance: ACETAMINOPHEN
     Indication: Arthralgia
     Dosage: 2 G, AS NEEDED
     Route: 048
  17. ASTRAZENECA COVID-19 VACCINE [Concomitant]
     Active Substance: AZD-1222
     Dosage: UNK
  18. CODEINE [Concomitant]
     Active Substance: CODEINE
     Dosage: UNK

REACTIONS (9)
  - Deep vein thrombosis [Not Recovered/Not Resolved]
  - Rash [Recovered/Resolved]
  - Cellulitis [Not Recovered/Not Resolved]
  - Peripheral swelling [Not Recovered/Not Resolved]
  - Decreased appetite [Not Recovered/Not Resolved]
  - Diarrhoea [Recovered/Resolved]
  - Fatigue [Recovered/Resolved]
  - Fatigue [Recovered/Resolved]
  - Nausea [Not Recovered/Not Resolved]

NARRATIVE: CASE EVENT DATE: 20160302
